FAERS Safety Report 17796883 (Version 5)
Quarter: 2023Q1

REPORT INFORMATION
  Report Type: Report from Study
  Country: JP (occurrence: JP)
  Receive Date: 20200518
  Receipt Date: 20230317
  Transmission Date: 20230418
  Serious: Yes (Other)
  Sender: FDA-Public Use
  Company Number: JP-SA-2020SA125987

PATIENT
  Age: 45 Year
  Sex: Male
  Weight: 64 kg

DRUGS (3)
  1. ELIGLUSTAT [Suspect]
     Active Substance: ELIGLUSTAT
     Indication: Gaucher^s disease
     Dosage: 1 DF, BID
     Route: 048
     Dates: start: 20190603
  2. ELIGLUSTAT [Suspect]
     Active Substance: ELIGLUSTAT
     Dosage: 100 MG, BID
     Route: 048
     Dates: start: 20191203
  3. ALFACALCIDOL [Concomitant]
     Active Substance: ALFACALCIDOL
     Indication: Product used for unknown indication
     Route: 048

REACTIONS (2)
  - Tongue cancer recurrent [Not Recovered/Not Resolved]
  - Lymphadenopathy [Not Recovered/Not Resolved]

NARRATIVE: CASE EVENT DATE: 20200423
